FAERS Safety Report 16265881 (Version 3)
Quarter: 2019Q2

REPORT INFORMATION
  Report Type: Spontaneous
  Country: GB (occurrence: GB)
  Receive Date: 20190502
  Receipt Date: 20190517
  Transmission Date: 20190711
  Serious: Yes (Life-Threatening, Hospitalization)
  Sender: FDA-Public Use
  Company Number: PHHY2019GB096293

PATIENT
  Age: 44 Year
  Sex: Male

DRUGS (2)
  1. OLANZAPINE. [Suspect]
     Active Substance: OLANZAPINE
     Indication: SCHIZOPHRENIA
     Route: 065
  2. METHADONE [Concomitant]
     Active Substance: METHADONE HYDROCHLORIDE
     Indication: PRODUCT USED FOR UNKNOWN INDICATION
     Route: 065

REACTIONS (8)
  - Polydipsia [Unknown]
  - Hyperglycaemia [Recovered/Resolved]
  - Insulin resistance [Unknown]
  - Weight increased [Unknown]
  - Type 2 diabetes mellitus [Recovering/Resolving]
  - Loss of consciousness [Unknown]
  - Hyperglycaemic hyperosmolar nonketotic syndrome [Recovered/Resolved]
  - Coma [Recovered/Resolved]
